FAERS Safety Report 4649454-6 (Version None)
Quarter: 2005Q2

REPORT INFORMATION
  Report Type: 
  Country: None (occurrence: None)
  Receive Date: 20050427
  Receipt Date: 20050324
  Transmission Date: 20051028
  Serious: Yes (Death, Hospitalization)
  Sender: FDA-Public Use
  Company Number: F01200500470

PATIENT
  Age: 63 Year
  Sex: Female

DRUGS (7)
  1. OXALIPLATIN - SOLUTION - 130 MG/M2 [Suspect]
     Indication: GASTRIC CANCER
     Dosage: 195 MG Q3W INTRAVENOUS NOS
     Route: 042
     Dates: start: 20050223, end: 20050223
  2. CAPECITABINE - TABLET - 2500 MG/M2 [Suspect]
     Dosage: 2500MG/M2 DAILY PER ORAL FROM DAY 1 TO DAY 14, Q3W ORAL
     Route: 048
     Dates: start: 20050223, end: 20050308
  3. BIOSE [Concomitant]
  4. GASMOTIN (MOSAPRIDE CITRATE) [Concomitant]
  5. FAMOTIDINE [Concomitant]
  6. MGO (MAGNESIUM OXIDE) [Concomitant]
  7. OXYCONTIN [Concomitant]

REACTIONS (18)
  - ACTIVATED PARTIAL THROMBOPLASTIN TIME PROLONGED [None]
  - BLOOD BICARBONATE DECREASED [None]
  - CEREBRAL INFARCTION [None]
  - DISEASE PROGRESSION [None]
  - EMBOLISM [None]
  - GENERAL PHYSICAL CONDITION ABNORMAL [None]
  - HAEMATEMESIS [None]
  - HAEMOGLOBIN DECREASED [None]
  - HEMIPLEGIA [None]
  - INTERNATIONAL NORMALISED RATIO INCREASED [None]
  - MYOCARDIAL INFARCTION [None]
  - PLATELET COUNT DECREASED [None]
  - PNEUMONIA ASPIRATION [None]
  - PROTHROMBIN TIME PROLONGED [None]
  - REFUSAL OF TREATMENT BY RELATIVE [None]
  - THROMBOSIS [None]
  - TUMOUR MARKER INCREASED [None]
  - VENTRICULAR HYPERTROPHY [None]
